FAERS Safety Report 25526322 (Version 1)
Quarter: 2025Q3

REPORT INFORMATION
  Report Type: Spontaneous
  Country: KR (occurrence: KR)
  Receive Date: 20250707
  Receipt Date: 20250707
  Transmission Date: 20251020
  Serious: Yes (Other)
  Sender: PFIZER
  Company Number: KR-PFIZER INC-202500132859

PATIENT
  Age: 14 Year
  Sex: Female

DRUGS (3)
  1. VINCRISTINE SULFATE [Suspect]
     Active Substance: VINCRISTINE SULFATE
     Indication: Ewing^s sarcoma
     Dosage: 2 MG, 1X/DAY
     Dates: start: 20241126, end: 20241126
  2. DACTINOMYCIN [Suspect]
     Active Substance: DACTINOMYCIN
     Indication: Ewing^s sarcoma
     Dosage: 2110 MG, 1X/DAY
     Dates: start: 20241126, end: 20241126
  3. DACTINOMYCIN [Suspect]
     Active Substance: DACTINOMYCIN
     Dosage: 1.06 MG, 1X/DAY
     Dates: start: 20241126, end: 20241127

REACTIONS (4)
  - Leukopenia [Recovering/Resolving]
  - Thrombocytopenia [Recovering/Resolving]
  - Anaemia [Recovering/Resolving]
  - Febrile neutropenia [Recovering/Resolving]

NARRATIVE: CASE EVENT DATE: 20241204
